FAERS Safety Report 24456367 (Version 2)
Quarter: 2024Q4

REPORT INFORMATION
  Report Type: Report from Study
  Country: US (occurrence: US)
  Receive Date: 20241017
  Receipt Date: 20241018
  Transmission Date: 20250115
  Serious: No
  Sender: ROCHE
  Company Number: US-ROCHE-3510974

PATIENT
  Age: 69 Year
  Sex: Female

DRUGS (7)
  1. RITUXAN [Suspect]
     Active Substance: RITUXIMAB
     Indication: Rheumatoid arthritis
     Dosage: STRENGTH: 500MG/50ML. ON DAY 1 AND DAY 15 THEN REPEAT 1 IN 4 MONTH.
     Route: 041
     Dates: start: 20210205
  2. CAFFEINE [Concomitant]
     Active Substance: CAFFEINE
  3. HYDROXYCHLOROQUINE SULFATE [Concomitant]
     Active Substance: HYDROXYCHLOROQUINE SULFATE
  4. METHOTREXATE [Concomitant]
     Active Substance: METHOTREXATE
  5. FOLIC ACID [Concomitant]
     Active Substance: FOLIC ACID
  6. OMEPRAZOLE [Concomitant]
     Active Substance: OMEPRAZOLE
  7. ERGOCALCIFEROL [Concomitant]
     Active Substance: ERGOCALCIFEROL

REACTIONS (4)
  - Spinal osteoarthritis [Unknown]
  - Vitamin D deficiency [Unknown]
  - Postmenopause [Unknown]
  - Osteoarthritis [Unknown]
